FAERS Safety Report 10219985 (Version 1)
Quarter: 2014Q2

REPORT INFORMATION
  Report Type: Spontaneous
  Country: GB (occurrence: GB)
  Receive Date: 20140605
  Receipt Date: 20140605
  Transmission Date: 20141212
  Serious: Yes (Hospitalization, Disabling, Other)
  Sender: FDA-Public Use
  Company Number: PHHY2014GB065950

PATIENT
  Age: 53 Year
  Sex: Female

DRUGS (2)
  1. OMEPRAZOLE [Suspect]
     Indication: NAUSEA
     Dosage: 40 MG, UNK
     Route: 042
     Dates: start: 20140513
  2. CYCLIZINE [Suspect]
     Indication: NAUSEA
     Dosage: 50 MG, UNK
     Route: 042

REACTIONS (1)
  - Convulsion [Recovered/Resolved]
